FAERS Safety Report 8743057 (Version 4)
Quarter: 2012Q4

REPORT INFORMATION
  Report Type: Report from Study
  Country: GB (occurrence: GB)
  Receive Date: 20120824
  Receipt Date: 20121030
  Transmission Date: 20130627
  Serious: Yes (Hospitalization)
  Sender: FDA-Public Use
  Company Number: GB-PFIZER INC-2012203386

PATIENT
  Age: 52 Year
  Sex: Female
  Weight: 83.3 kg

DRUGS (8)
  1. EPIRUBICIN HCL [Suspect]
     Indication: BREAST CANCER
     Dosage: 100 mg/m2, every 3 weeks
     Route: 042
     Dates: start: 20120702
  2. EPIRUBICIN HCL [Suspect]
     Dosage: 200 mg/m2, every 3 weeks (3rd cycle)
     Route: 042
     Dates: start: 20120813
  3. CYCLOPHOSPHAMIDE [Suspect]
     Indication: BREAST CANCER
     Dosage: 500 mg/m2, every 3 weeks
     Route: 042
     Dates: start: 20120702
  4. CYCLOPHOSPHAMIDE [Suspect]
     Dosage: 1000 mg/m2, every 3 weeks (3rd cycle)
     Route: 042
     Dates: start: 20120813
  5. FLUOROURACIL [Suspect]
     Indication: BREAST CANCER
     Dosage: 500 mg, every 3 weeks
     Route: 042
     Dates: start: 20120702
  6. FLUOROURACIL [Suspect]
     Dosage: 1000 mg/m2, every 3 weeks (3rd cycle)
     Route: 042
     Dates: start: 20120813
  7. BLINDED THERAPY [Suspect]
     Indication: BREAST CANCER
  8. TRASTUZUMAB [Concomitant]
     Indication: BREAST CANCER

REACTIONS (4)
  - Neutropenic sepsis [Recovered/Resolved]
  - Diarrhoea infectious [Unknown]
  - Pyrexia [Recovered/Resolved]
  - Neutropenia [Not Recovered/Not Resolved]
